FAERS Safety Report 13020700 (Version 3)
Quarter: 2020Q3

REPORT INFORMATION
  Report Type: Report from Study
  Country: JP (occurrence: JP)
  Receive Date: 20161212
  Receipt Date: 20170130
  Transmission Date: 20201105
  Serious: Yes (Death, Life-Threatening, Hospitalization, Other)
  Sender: FDA-Public Use
  Company Number: JP-ASTRAZENECA-2016SF30830

PATIENT
  Age: 75 Year
  Sex: Male
  Weight: 60 kg

DRUGS (31)
  1. PHOSBLOCK [Suspect]
     Active Substance: FERRIC HYDROXIDE
     Indication: CHRONIC KIDNEY DISEASE
     Dosage: 250 MG, TWICE DAILY AFTER BREAKFAST
     Route: 048
     Dates: start: 20110405, end: 20161204
  2. SOLU?MEDROL [Concomitant]
     Active Substance: METHYLPREDNISOLONE SODIUM SUCCINATE
     Dosage: 1000 MG
     Dates: start: 20161205, end: 20161208
  3. SOLITA?T1 [Concomitant]
     Dates: start: 20161203, end: 20161208
  4. BAYASPIRIN [Suspect]
     Active Substance: ASPIRIN
     Indication: PERIPHERAL ARTERIAL OCCLUSIVE DISEASE
     Dosage: 100 MG, ONCE DAILY AFTER BREAKFAST
     Route: 048
     Dates: start: 20040309, end: 20161205
  5. KINEDAK [Suspect]
     Active Substance: EPALRESTAT
     Indication: DIABETIC NEUROPATHY
     Dosage: 50 MG, THRICE DAILY AFTER EVERY MEALS
     Route: 048
     Dates: start: 200009, end: 20161204
  6. AVAPRO [Suspect]
     Active Substance: IRBESARTAN
     Indication: HYPERTENSION
     Route: 048
     Dates: start: 20161130, end: 20161204
  7. ALFAROL [Suspect]
     Active Substance: ALFACALCIDOL
     Indication: CHRONIC KIDNEY DISEASE
     Route: 048
     Dates: start: 20060123, end: 20161204
  8. FERROUS SULFATE. [Suspect]
     Active Substance: FERROUS SULFATE
     Indication: IRON DEFICIENCY ANAEMIA
     Dosage: 105 MG, ONCE DAILY, AFTER BREAFAST
     Route: 048
     Dates: start: 20100406, end: 20161205
  9. MOHRUS [Concomitant]
     Active Substance: KETOPROFEN
     Dosage: 120 MG
     Dates: end: 20161208
  10. HEPARIN SODIUM. [Concomitant]
     Active Substance: HEPARIN SODIUM
     Dosage: 5 ML
     Dates: start: 20161205, end: 20161208
  11. HIRUDOID MILD [Concomitant]
     Dates: end: 20161208
  12. RISUMIC [Concomitant]
     Active Substance: AMEZINIUM METILSULFATE
     Dosage: 10 MG
     Dates: end: 20161205
  13. STRONGER NEO?MINOPHAGEN C [Concomitant]
     Active Substance: AMMONIUM GLYCYRRHIZATE\CYSTEINE HYDROCHLORIDE\GLYCINE
     Dosage: 20 ML
     Dates: start: 20161204, end: 20161208
  14. AZD9941 [Suspect]
     Active Substance: ROXADUSTAT
     Indication: NEPHROGENIC ANAEMIA
     Dosage: 100 MG, THRICE WEEKLY, AT BEDTIME BEFORE THE DAY OF DIALYSIS (TUE, THU, SAT)/WEEK
     Route: 048
     Dates: start: 20161128, end: 20161130
  15. NORVASC [Suspect]
     Active Substance: AMLODIPINE BESYLATE
     Indication: HYPERTENSION
     Route: 048
     Dates: start: 20161129, end: 20161204
  16. GLUCOSE [Concomitant]
     Active Substance: DEXTROSE
     Dosage: 50 %
     Dates: start: 20161203, end: 20161208
  17. PLAVIX [Suspect]
     Active Substance: CLOPIDOGREL BISULFATE
     Indication: PERIPHERAL ARTERIAL OCCLUSIVE DISEASE
     Dosage: 75 MG, ONCE DAILY. AFTER BREAKFAST
     Route: 048
     Dates: start: 20160720, end: 20161204
  18. BROTIZOLAM [Concomitant]
     Active Substance: BROTIZOLAM
     Dosage: 0.25 MG
     Dates: start: 20161204, end: 20161204
  19. NORADRENALINE [Concomitant]
     Active Substance: NOREPINEPHRINE
  20. NEOLAMIN [Concomitant]
     Route: 065
  21. AVAPRO [Suspect]
     Active Substance: IRBESARTAN
     Indication: HYPERTENSION
     Route: 048
     Dates: start: 20110705, end: 20161129
  22. NORVASC [Suspect]
     Active Substance: AMLODIPINE BESYLATE
     Indication: HYPERTENSION
     Route: 048
     Dates: start: 20100614, end: 20161128
  23. NEUART [Concomitant]
     Active Substance: ANTITHROMBIN III HUMAN
     Dosage: 1500 IU
     Dates: start: 20161205, end: 20161207
  24. VITAMEDIN [Concomitant]
     Active Substance: CYANOCOBALAMIN\PYRIDOXINE HYDROCHLORIDE\THIAMINE
     Dates: start: 20161203, end: 20161208
  25. MEDLENIK [Concomitant]
     Active Substance: CUPRIC SULFATE\FERRIC CHLORIDE\MANGANESE CHLORIDE\POTASSIUM IODIDE\ZINC SULFATE
     Route: 065
  26. NEXIUM [Suspect]
     Active Substance: ESOMEPRAZOLE MAGNESIUM
     Indication: PROPHYLAXIS AGAINST GASTROINTESTINAL ULCER
     Dosage: 20 MG, ONCE DAILY AFTER DINNER
     Route: 048
     Dates: start: 20121016, end: 20161205
  27. ALBUMINAR [Concomitant]
     Active Substance: ALBUMIN HUMAN
     Dosage: 50 ML
     Dates: start: 20161205, end: 20161205
  28. BROTIZOLAM [Concomitant]
     Active Substance: BROTIZOLAM
     Dosage: 0.25 MG
     Dates: start: 20161204, end: 20161204
  29. BASEN [VOGLIBOSE] [Suspect]
     Active Substance: VOGLIBOSE
     Indication: DIABETES MELLITUS
     Dosage: 0.3 MG, THRICE DAILY, JUST BEFORE EVERY MEAL
     Route: 048
     Dates: start: 20060220, end: 20161204
  30. TERPERAN [Concomitant]
     Active Substance: METOCLOPRAMIDE HYDROCHLORIDE
     Dosage: 10 MG
     Dates: start: 20161204, end: 20161204
  31. NEOAMIYU [Concomitant]
     Active Substance: AMINO ACIDS, SOURCE UNSPECIFIED
     Dates: start: 20161203, end: 20161208

REACTIONS (3)
  - Decreased appetite [Not Recovered/Not Resolved]
  - Hepatitis acute [Not Recovered/Not Resolved]
  - Lactic acidosis [Fatal]

NARRATIVE: CASE EVENT DATE: 20161128
